FAERS Safety Report 7156406-3 (Version None)
Quarter: 2010Q4

REPORT INFORMATION
  Report Type: 
  Country: None (occurrence: None)
  Receive Date: 20101214
  Receipt Date: 20101203
  Transmission Date: 20110411
  Serious: Yes (Hospitalization, Other)
  Sender: FDA-Public Use
  Company Number: JP-SANOFI-AVENTIS-2010SA074796

PATIENT
  Age: 53 Year
  Sex: Male
  Weight: 55 kg

DRUGS (6)
  1. ELPLAT [Suspect]
     Indication: LARGE INTESTINE CARCINOMA
     Route: 041
     Dates: start: 20100915, end: 20100915
  2. ELPLAT [Suspect]
     Route: 041
     Dates: start: 20101124, end: 20101124
  3. CALCIUM LEVOFOLINATE [Suspect]
     Indication: LARGE INTESTINE CARCINOMA
     Route: 041
     Dates: start: 20100915, end: 20101124
  4. FLUOROURACIL [Suspect]
     Indication: LARGE INTESTINE CARCINOMA
     Route: 040
     Dates: start: 20100915, end: 20101124
  5. FLUOROURACIL [Suspect]
     Route: 041
     Dates: start: 20100915, end: 20101124
  6. AVASTIN [Concomitant]
     Indication: LARGE INTESTINE CARCINOMA
     Route: 041
     Dates: start: 20100915, end: 20101124

REACTIONS (6)
  - CARDIOGENIC SHOCK [None]
  - HEPATIC FAILURE [None]
  - PLEURAL EFFUSION [None]
  - RESPIRATORY DISTRESS [None]
  - SHOCK [None]
  - TACHYCARDIA [None]
